FAERS Safety Report 8621606-X (Version None)
Quarter: 2012Q3

REPORT INFORMATION
  Report Type: 
  Country: None (occurrence: None)
  Receive Date: 20120820
  Receipt Date: 20120820
  Transmission Date: 20120928
  Serious: Yes (Other)
  Sender: FDA-Public Use
  Company Number: None

PATIENT
  Age: 32 Year
  Sex: Male
  Weight: 68 kg

DRUGS (2)
  1. NTG MEN INVIGORATING FACE WASH [Suspect]
     Indication: SKIN DISORDER
     Dosage: QUARTER SIZE, TOPICAL
     Route: 061
  2. NTG MEN ACTIVE PROTECT FACE LOTION SPF 50+ [Suspect]
     Indication: SKIN DISORDER
     Dosage: ENOUGH AMOUNT, TOPICAL
     Route: 061

REACTIONS (3)
  - URTICARIA [None]
  - CHEMICAL INJURY [None]
  - RASH PRURITIC [None]
